FAERS Safety Report 9280002 (Version 1)
Quarter: 2013Q2

REPORT INFORMATION
  Report Type: Spontaneous
  Country: US (occurrence: GB)
  Receive Date: 20130509
  Receipt Date: 20130509
  Transmission Date: 20140414
  Serious: Yes (Hospitalization)
  Sender: FDA-Public Use
  Company Number: GB-PFIZER INC-2008008934JJ

PATIENT
  Age: 84 Year
  Sex: Female

DRUGS (4)
  1. IBUPROFEN (UNSPECIFIED) [Suspect]
     Indication: BACK PAIN
     Route: 048
     Dates: start: 200511, end: 20051203
  2. ACETYLSALICYLIC ACID [Concomitant]
     Dosage: 75 MG
     Route: 048
  3. FRUSEMIDE [Concomitant]
     Dosage: 40 MG
     Route: 048
  4. LOSARTAN [Concomitant]
     Dosage: 100 MG
     Route: 048

REACTIONS (2)
  - Gastrointestinal haemorrhage [Recovered/Resolved]
  - Syncope [Recovered/Resolved]
